FAERS Safety Report 19386222 (Version 3)
Quarter: 2021Q4

REPORT INFORMATION
  Report Type: Spontaneous
  Country: FR (occurrence: FR)
  Receive Date: 20210607
  Receipt Date: 20211022
  Transmission Date: 20220303
  Serious: Yes (Other)
  Sender: FDA-Public Use
  Company Number: None

PATIENT
  Age: 73 Year
  Sex: Female
  Weight: 61.2 kg

DRUGS (15)
  1. RITUXIMAB [Suspect]
     Active Substance: RITUXIMAB
     Dosage: INFUSION EVERY 21 DAYS
     Route: 041
     Dates: start: 20210329, end: 20210329
  2. IMBRUVICA [Suspect]
     Active Substance: IBRUTINIB
     Indication: B-cell lymphoma
     Route: 048
     Dates: start: 20210329, end: 20210421
  3. MODERNA COVID-19 VACCINE [Suspect]
     Active Substance: CX-024414
     Indication: COVID-19 immunisation
     Dosage: DOSE 1
     Route: 030
     Dates: start: 20210323, end: 20210323
  4. MODERNA COVID-19 VACCINE [Suspect]
     Active Substance: CX-024414
     Dosage: DOSE 2
     Route: 030
     Dates: start: 20210419, end: 20210419
  5. REVLIMID [Suspect]
     Active Substance: LENALIDOMIDE
     Indication: B-cell lymphoma
     Dosage: 20MG IN THE MORNING, 21 DAYS OUT OF 28
     Route: 048
     Dates: start: 20210330, end: 20210418
  6. VALACYCLOVIR HYDROCHLORIDE [Concomitant]
     Active Substance: VALACYCLOVIR HYDROCHLORIDE
     Dosage: 1 TABLET IN THE MORNING
  7. BACTRIM [Concomitant]
     Active Substance: SULFAMETHOXAZOLE\TRIMETHOPRIM
     Dosage: 1 TABLET ON MONDAYS, WEDNESDAYS AND FRIDAYS
  8. VIMPAT [Concomitant]
     Active Substance: LACOSAMIDE
  9. PREDNISOLONE [Concomitant]
     Active Substance: PREDNISOLONE
     Dosage: 3 TABLETS IN THE MORNING
  10. LEVOFLOXACIN [Concomitant]
     Active Substance: LEVOFLOXACIN
     Dosage: 1 SUB-CUTANEOUS INJECTION PER DAY
  11. METOCLOPRAMIDE [Concomitant]
     Active Substance: METOCLOPRAMIDE
     Dosage: 1 TABLET EVERY 8 HOURS IF NECESSARY
  12. ONDANSETRON [Concomitant]
     Active Substance: ONDANSETRON
     Dosage: 1 TABLET MORNING AND EVENING IF NEEDED UNTIL THE 5TH DAY AFTER CHEMOTHERAPY
  13. MOVICOL [Concomitant]
     Active Substance: POLYETHYLENE GLYCOL 3350\POTASSIUM CHLORIDE\SODIUM BICARBONATE\SODIUM CHLORIDE
     Dosage: 2 SACHETS AT MIDDAY IF NECESSARY
  14. POTASSIUM BITARTRATE\SODIUM BICARBONATE [Concomitant]
     Active Substance: POTASSIUM BITARTRATE\SODIUM BICARBONATE
     Dosage: 1 SUPPOSITORY IN THE MORNING IF NECESSARY
  15. PHLOROGLUCINOL [Concomitant]
     Active Substance: PHLOROGLUCINOL
     Dosage: 2 TABLETS EVERY 6 HOURS IF NECESSARY

REACTIONS (1)
  - Hepatocellular injury [Unknown]

NARRATIVE: CASE EVENT DATE: 20210420
